FAERS Safety Report 8598435 (Version 2)
Quarter: 2014Q1

REPORT INFORMATION
  Report Type: Spontaneous
  Country: US (occurrence: None)
  Receive Date: 20120323
  Receipt Date: 20130305
  Transmission Date: 20141002
  Serious: Yes (Other)
  Sender: FDA-Public Use
  Company Number: 163-21880-11122987

PATIENT
  Age: 59 Year
  Sex: Female

DRUGS (1)
  1. REVLIMID [Suspect]
     Indication: PLASMA CELL MYELOMA
     Dosage: 25 MG, DAILY X 3 WEEKS ON DAYS 1-21, EVERY 28 D, PO
     Route: 048
     Dates: start: 20110922

REACTIONS (3)
  - Hypersensitivity [None]
  - Rash [None]
  - Throat tightness [None]
